FAERS Safety Report 10912145 (Version 2)
Quarter: 2015Q1

REPORT INFORMATION
  Report Type: Spontaneous
  Country: US (occurrence: US)
  Receive Date: 20150313
  Receipt Date: 20150316
  Transmission Date: 20150721
  Serious: Yes (Hospitalization, Other)
  Sender: FDA-Public Use
  Company Number: US-ABBVIE-15P-163-1358055-00

PATIENT
  Age: 60 Year
  Sex: Male
  Weight: 81.72 kg

DRUGS (2)
  1. ENALAPRIL [Concomitant]
     Active Substance: ENALAPRIL
     Indication: HYPERTENSION
     Route: 065
  2. ANDROGEL [Suspect]
     Active Substance: TESTOSTERONE
     Indication: BLOOD TESTOSTERONE DECREASED
     Route: 061
     Dates: start: 2010

REACTIONS (9)
  - Cerebrovascular accident [Recovering/Resolving]
  - Middle insomnia [Recovered/Resolved]
  - Confusional state [Recovered/Resolved]
  - Mental impairment [Recovered/Resolved]
  - Aphasia [Not Recovered/Not Resolved]
  - Disturbance in attention [Not Recovered/Not Resolved]
  - Speech disorder [Recovered/Resolved]
  - Change in sustained attention [Not Recovered/Not Resolved]
  - Feeling abnormal [Recovered/Resolved]
